FAERS Safety Report 6109256-0 (Version None)
Quarter: 2009Q1

REPORT INFORMATION
  Report Type: 
  Country: None (occurrence: None)
  Receive Date: 20090306
  Receipt Date: 20090306
  Transmission Date: 20090719
  Serious: Yes (Hospitalization)
  Sender: FDA-Public Use
  Company Number: None

PATIENT
  Age: 60 Year
  Sex: Male
  Weight: 118.39 kg

DRUGS (1)
  1. CIPROFLOXACIN [Suspect]
     Indication: UROSEPSIS
     Dosage: 500 MG BID PO
     Route: 048
     Dates: start: 20090107, end: 20090114

REACTIONS (3)
  - CLOSTRIDIUM DIFFICILE TOXIN TEST POSITIVE [None]
  - DEHYDRATION [None]
  - DIARRHOEA [None]
